FAERS Safety Report 18980313 (Version 1)
Quarter: 2021Q1

REPORT INFORMATION
  Report Type: Spontaneous
  Country: US (occurrence: US)
  Receive Date: 20210306
  Receipt Date: 20210306
  Transmission Date: 20210420
  Serious: Yes (Hospitalization)
  Sender: FDA-Public Use
  Company Number: None

PATIENT
  Age: 17 Year
  Sex: Male
  Weight: 51.75 kg

DRUGS (1)
  1. DOXYCYCLINE HYC [Suspect]
     Active Substance: DOXYCYCLINE HYCLATE
     Indication: ACNE
     Dates: start: 20210125, end: 20210223

REACTIONS (1)
  - Intestinal haemorrhage [None]

NARRATIVE: CASE EVENT DATE: 20210227
